FAERS Safety Report 5491517-X (Version None)
Quarter: 2007Q4

REPORT INFORMATION
  Report Type: 
  Country: None (occurrence: None)
  Receive Date: 20071022
  Receipt Date: 20071015
  Transmission Date: 20080405
  Serious: Yes (Death, Hospitalization)
  Sender: FDA-Public Use
  Company Number: PHRM2007FR02375

PATIENT
  Age: 46 Year
  Sex: Male

DRUGS (9)
  1. METALYSE [Suspect]
     Indication: ACUTE MYOCARDIAL INFARCTION
     Dosage: 9000 IU, ONCE/SINGLE
     Route: 040
     Dates: start: 20070530, end: 20070530
  2. LOVENOX [Suspect]
     Indication: ACUTE MYOCARDIAL INFARCTION
     Dosage: 3 MG, ONCE/SINGLE
     Route: 040
     Dates: start: 20070530, end: 20070530
  3. ASPEGIC 325 [Suspect]
     Indication: ACUTE MYOCARDIAL INFARCTION
     Dosage: 250 MG, ONCE/SINGLE
     Route: 040
     Dates: start: 20070530, end: 20070530
  4. KARDEGIC [Suspect]
     Indication: MYOCARDIAL INFARCTION
     Dosage: 75 MG, QD
     Route: 048
  5. PLAVIX [Suspect]
     Indication: MYOCARDIAL INFARCTION
     Dosage: 1 DF, QD
     Route: 048
  6. SECTRAL [Concomitant]
     Dosage: 200 MG, BID
     Route: 048
  7. AMLOR [Concomitant]
     Dosage: 5 MG, QD
     Route: 048
  8. FOZITEC [Concomitant]
     Dosage: 10 MG, QD
     Route: 048
  9. LESCOL [Suspect]
     Dosage: 80 MG, QD
     Route: 048

REACTIONS (24)
  - ACUTE CORONARY SYNDROME [None]
  - ACUTE MYOCARDIAL INFARCTION [None]
  - ALANINE AMINOTRANSFERASE INCREASED [None]
  - AREFLEXIA [None]
  - ASPARTATE AMINOTRANSFERASE INCREASED [None]
  - BLOOD ALBUMIN DECREASED [None]
  - BLOOD LACTIC ACID INCREASED [None]
  - BLOOD PRESSURE DECREASED [None]
  - BRAIN COMPRESSION [None]
  - BRAIN DEATH [None]
  - CEREBELLAR HAEMATOMA [None]
  - GENERAL PHYSICAL HEALTH DETERIORATION [None]
  - HAEMOGLOBIN DECREASED [None]
  - INTRAVENTRICULAR HAEMORRHAGE [None]
  - INTUBATION [None]
  - MYDRIASIS [None]
  - PAO2/FIO2 RATIO DECREASED [None]
  - POLYURIA [None]
  - PROTHROMBIN TIME RATIO DECREASED [None]
  - PUPILS UNEQUAL [None]
  - RESPIRATORY DISTRESS [None]
  - SHOCK [None]
  - TROPONIN INCREASED [None]
  - VENTRICULAR FIBRILLATION [None]
